FAERS Safety Report 6378449-X (Version None)
Quarter: 2009Q3

REPORT INFORMATION
  Report Type: 
  Country: None (occurrence: None)
  Receive Date: 20090927
  Receipt Date: 20090909
  Transmission Date: 20100115
  Serious: Yes (Other)
  Sender: FDA-Public Use
  Company Number: US-BAYER-200933502NA

PATIENT
  Age: 44 Year
  Sex: Male
  Weight: 149 kg

DRUGS (1)
  1. MAGNEVIST [Suspect]
     Indication: DRUG USE FOR UNKNOWN INDICATION
     Dosage: ^APPROPRIATE X 1 IV^
     Route: 042
     Dates: start: 20071219, end: 20071219

REACTIONS (4)
  - ASPHYXIA [None]
  - CARDIO-RESPIRATORY ARREST [None]
  - FALL [None]
  - NAUSEA [None]
